FAERS Safety Report 7043283-4 (Version None)
Quarter: 2010Q4

REPORT INFORMATION
  Report Type: 
  Country: None (occurrence: None)
  Receive Date: 20101013
  Receipt Date: 20100217
  Transmission Date: 20110411
  Serious: No
  Sender: FDA-Public Use
  Company Number: US-ASTRAZENECA-2010SE06922

PATIENT
  Age: 73 Year
  Sex: Female
  Weight: 52.2 kg

DRUGS (3)
  1. SYMBICORT [Suspect]
     Indication: ASTHMA EXERCISE INDUCED
     Dosage: 160/4.5 TWO PUFFS
     Route: 055
     Dates: start: 20100117
  2. BENICAR [Concomitant]
  3. CARVEDILOL [Concomitant]

REACTIONS (2)
  - DYSPNOEA [None]
  - HYPERTENSION [None]
